FAERS Safety Report 9553873 (Version 2)
Quarter: 2014Q1

REPORT INFORMATION
  Report Type: Spontaneous
  Country: US (occurrence: None)
  Receive Date: 20130821
  Receipt Date: 20131121
  Transmission Date: 20141002
  Serious: No
  Sender: FDA-Public Use
  Company Number: 1000046957

PATIENT
  Age: 78 Year
  Sex: Female

DRUGS (14)
  1. TUDORZA PRESSAIR (ACLIDINIUM BROMIDE) (400 MICROGRAM, POWDER) [Suspect]
     Indication: CHRONIC OBSTRUCTIVE PULMONARY DISEASE
     Dosage: 800 MCG (400 MCG, 2 IN 1 D), RESPIRATORY
     Route: 055
     Dates: start: 20130630, end: 20130719
  2. ZOPITAN (ZOPICLONE) (ZOPICLONE) [Concomitant]
  3. ALPHAGAN P (BRIMONIDINE TARTRATE) (BRIMONIDINE TARTRATE) [Concomitant]
  4. SYNTHROID (LEVOTHYROXINE SODIUM) (LEVOTHYROXINE SODIUM) [Concomitant]
  5. PREMARIN (ESTROGENS CONJUGATED) (ESTROGENS CONJUGATED) [Concomitant]
  6. PREDNISONE (PREDNISONE) (PREDNISONE) [Concomitant]
  7. BENICAR (OLMESARTAN MEDOXOMIL) (OLMESARTAN MEDOXOMIL) [Concomitant]
  8. AMLODIPINE (AMLODIPINE) (AMLODIPINE) [Concomitant]
  9. BUDESONIDE (BUDESONIDE) (BUDESONIDE) [Concomitant]
  10. ALPRAZOLAM [Concomitant]
  11. BROVANA (ARFORMOTEROL TARTRATE) [Concomitant]
  12. BETAMETHASONE [Concomitant]
  13. VENTOLIN (ALBUTEROL) [Concomitant]
  14. STEROID NOS [Concomitant]

REACTIONS (8)
  - Dyspnoea [None]
  - Chest discomfort [None]
  - Back pain [None]
  - Asthma [None]
  - Chills [None]
  - Influenza like illness [None]
  - Wheezing [None]
  - Musculoskeletal pain [None]
